FAERS Safety Report 10505032 (Version 2)
Quarter: 2014Q4

REPORT INFORMATION
  Report Type: Spontaneous
  Country: US (occurrence: None)
  Receive Date: 20140926
  Receipt Date: 20141223
  Transmission Date: 20150528
  Serious: No
  Sender: FDA-Public Use
  Company Number: 1000068782

PATIENT
  Age: 77 Year
  Sex: Female

DRUGS (2)
  1. LINZESS [Suspect]
     Active Substance: LINACLOTIDE
     Indication: CONSTIPATION
     Route: 048
     Dates: start: 201404
  2. MIRALAX (POLYETHLENE GLYCOL) (POLYETHYLENE GLYCOL) [Concomitant]

REACTIONS (3)
  - Abdominal distension [None]
  - Drug ineffective [None]
  - Off label use [None]

NARRATIVE: CASE EVENT DATE: 201404
